FAERS Safety Report 6824428-5 (Version None)
Quarter: 2010Q3

REPORT INFORMATION
  Report Type: 
  Country: None (occurrence: None)
  Receive Date: 20100708
  Receipt Date: 20061023
  Transmission Date: 20110219
  Serious: No
  Sender: FDA-Public Use
  Company Number: US-PFIZER INC-2006129722

PATIENT
  Sex: Female
  Weight: 66.68 kg

DRUGS (7)
  1. CHANTIX [Suspect]
     Indication: SMOKING CESSATION THERAPY
     Dates: start: 20060928, end: 20061020
  2. TERIPARATIDE [Suspect]
     Dates: start: 20060101
  3. METHOTREXATE [Concomitant]
  4. HUMIRA [Concomitant]
  5. NAPROSYN [Concomitant]
  6. PREDNISONE [Concomitant]
  7. SULFASALAZINE [Concomitant]

REACTIONS (3)
  - INSOMNIA [None]
  - NIGHTMARE [None]
  - UNEVALUABLE EVENT [None]
